FAERS Safety Report 13574979 (Version 2)
Quarter: 2019Q3

REPORT INFORMATION
  Report Type: Spontaneous
  Country: IN (occurrence: IN)
  Receive Date: 20170523
  Receipt Date: 20190813
  Transmission Date: 20191004
  Serious: Yes (Hospitalization)
  Sender: FDA-Public Use
  Company Number: IN-DSJP-DSJ-2017-115273

PATIENT

DRUGS (1)
  1. OLMESARTAN MEDOXOMIL; HYDROCHLOROTHIAZIDE [Suspect]
     Active Substance: HYDROCHLOROTHIAZIDE\OLMESARTAN MEDOXOMIL
     Indication: PRODUCT USED FOR UNKNOWN INDICATION
     Dosage: 20/12.5MG
     Route: 064

REACTIONS (5)
  - Renal dysplasia [Recovered/Resolved]
  - Dyspnoea [Recovered/Resolved]
  - Foetal exposure during pregnancy [Unknown]
  - Pulmonary haemorrhage [Recovered/Resolved]
  - Microcephaly [Recovered/Resolved]
